FAERS Safety Report 10206056 (Version 1)
Quarter: 2014Q2

REPORT INFORMATION
  Report Type: Spontaneous
  Country: US (occurrence: None)
  Receive Date: 20140527
  Receipt Date: 20140527
  Transmission Date: 20141212
  Serious: No
  Sender: FDA-Public Use
  Company Number: 2014-00070

PATIENT
  Age: 78 Year
  Sex: Male
  Weight: 102.06 kg

DRUGS (4)
  1. ZICAM ULTRA COLD REMEDY CRYSTALS [Suspect]
     Indication: NASOPHARYNGITIS
     Dosage: 2-3 PACKETS ORALLY PER DAY
     Route: 048
     Dates: start: 20140430, end: 20140514
  2. ZICAM ULTRA COLD REMEDY CRYSTALS [Suspect]
     Indication: INFLUENZA
     Dosage: 2-3 PACKETS ORALLY PER DAY
     Route: 048
     Dates: start: 20140430, end: 20140514
  3. ZOCOR [Concomitant]
  4. PAXIL [Concomitant]

REACTIONS (1)
  - Ageusia [None]
